FAERS Safety Report 8307751-7 (Version None)
Quarter: 2012Q2

REPORT INFORMATION
  Report Type: 
  Country: None (occurrence: None)
  Receive Date: 20120424
  Receipt Date: 20120419
  Transmission Date: 20120825
  Serious: Yes (Hospitalization)
  Sender: FDA-Public Use
  Company Number: PE-PFIZER INC-2012077392

PATIENT
  Age: 80 Year
  Sex: Male

DRUGS (4)
  1. MICARDIS [Concomitant]
     Dosage: UNK
     Route: 048
  2. DOXIUM [Concomitant]
     Dosage: UNK
     Route: 048
  3. NORVASC [Suspect]
     Indication: HYPERTENSION
     Dosage: 5 MG, 1X/DAY
     Route: 048
  4. LIPITOR [Suspect]
     Indication: DYSLIPIDAEMIA
     Dosage: 20 MG, 1X/DAY
     Route: 048

REACTIONS (2)
  - BLOOD PRESSURE INCREASED [None]
  - BRADYCARDIA [None]
